FAERS Safety Report 10373217 (Version 2)
Quarter: 2014Q3

REPORT INFORMATION
  Report Type: Spontaneous
  Country: US (occurrence: US)
  Receive Date: 20140808
  Receipt Date: 20140808
  Transmission Date: 20150326
  Serious: No
  Sender: FDA-Public Use
  Company Number: US-BRISTOL-MYERS SQUIBB COMPANY-20209888

PATIENT
  Age: 55 Year
  Sex: Male

DRUGS (1)
  1. SPRYCEL [Suspect]
     Active Substance: DASATINIB
     Indication: CHRONIC MYELOID LEUKAEMIA
     Dosage: INTERRUPTED ON 28JAN2014?RESTARTED ON 10FEB14-STILL CONT?BATCH NO. 3L73685B
     Route: 048
     Dates: start: 20140108

REACTIONS (3)
  - Anaemia [Recovered/Resolved]
  - White blood cell count decreased [Unknown]
  - Gastrointestinal disorder [Unknown]
